FAERS Safety Report 5720670-5 (Version None)
Quarter: 2008Q2

REPORT INFORMATION
  Report Type: 
  Country: None (occurrence: None)
  Receive Date: 20080425
  Receipt Date: 20080425
  Transmission Date: 20081010
  Serious: Yes (Hospitalization)
  Sender: FDA-Public Use
  Company Number: None

PATIENT
  Sex: Female
  Weight: 60.77 kg

DRUGS (17)
  1. ZITHROMAX [Suspect]
     Indication: NASOPHARYNGITIS
     Dosage: 250MG DAILY PO
     Route: 048
     Dates: start: 20080408, end: 20080410
  2. ZANTAC [Concomitant]
  3. LIPITOR [Concomitant]
  4. VASOTEC [Concomitant]
  5. IMDUR [Concomitant]
  6. AMIODARONE HCL [Concomitant]
  7. ALPRAZOLAM [Concomitant]
  8. DUONEB [Concomitant]
  9. COUMADIN [Concomitant]
  10. LASIX [Concomitant]
  11. ZITHROMAX [Concomitant]
  12. POTASSIUM CHLORIDE [Concomitant]
  13. NAMENDA [Concomitant]
  14. DARVOCET-N 100 [Concomitant]
  15. COREG [Concomitant]
  16. TRILAFON [Concomitant]
  17. SYNTHROID [Concomitant]

REACTIONS (1)
  - VENTRICULAR FIBRILLATION [None]
